FAERS Safety Report 7380536-4 (Version None)
Quarter: 2011Q1

REPORT INFORMATION
  Report Type: 
  Country: None (occurrence: None)
  Receive Date: 20110325
  Receipt Date: 20110325
  Transmission Date: 20110831
  Serious: Yes (Hospitalization)
  Sender: FDA-Public Use
  Company Number: None

PATIENT
  Sex: Male

DRUGS (1)
  1. LEUKINE [Suspect]
     Dosage: INJECT 1/2 VIAL DAILY AS DIREC INJECT 1/2 VIAL DA IV
     Route: 042

REACTIONS (1)
  - MYOCARDIAL INFARCTION [None]
